FAERS Safety Report 9086470 (Version 1)
Quarter: 2013Q1

REPORT INFORMATION
  Report Type: Report from Study
  Country: US (occurrence: US)
  Receive Date: 20130130
  Receipt Date: 20130130
  Transmission Date: 20140127
  Serious: No
  Sender: FDA-Public Use
  Company Number: US-ABBOTT-12P-163-0988704-00

PATIENT
  Age: 61 Year
  Sex: Female

DRUGS (7)
  1. HUMIRA [Suspect]
     Indication: RHEUMATOID ARTHRITIS
     Dates: start: 20120501
  2. CELEBREX [Concomitant]
     Indication: RHEUMATOID ARTHRITIS
  3. HYDROXYCHOLOQUINE [Concomitant]
     Indication: RHEUMATOID ARTHRITIS
  4. MICARDIS HCT [Concomitant]
     Indication: HYPERTENSION
     Dosage: 80/12.5
  5. BYSTOLIC [Concomitant]
     Indication: HYPERTENSION
     Dosage: 2.5MG DAILY
  6. DIPHENHYDRAMINE [Concomitant]
     Indication: INSOMNIA
     Dosage: AT NIGHT
  7. ZEGERID [Concomitant]
     Indication: DYSPEPSIA

REACTIONS (2)
  - Pain [Not Recovered/Not Resolved]
  - Swelling [Not Recovered/Not Resolved]
